FAERS Safety Report 7651337-4 (Version None)
Quarter: 2011Q3

REPORT INFORMATION
  Report Type: 
  Country: None (occurrence: None)
  Receive Date: 20110802
  Receipt Date: 20110719
  Transmission Date: 20111222
  Serious: Yes (Other)
  Sender: FDA-Public Use
  Company Number: PHHY2011DE65913

PATIENT
  Sex: Male

DRUGS (3)
  1. MARCUMAR [Concomitant]
     Indication: PULMONARY EMBOLISM
     Dosage: UNK UKN, UNK
  2. LANTUS [Concomitant]
     Indication: DIABETES MELLITUS
     Dosage: UNK UKN, UNK
  3. RASILEZ [Suspect]
     Indication: HYPERTENSION
     Dosage: 1 DF, QD
     Route: 048
     Dates: start: 20110101

REACTIONS (3)
  - BLOOD URINE PRESENT [None]
  - OESOPHAGEAL DISORDER [None]
  - DYSPEPSIA [None]
